FAERS Safety Report 5287560-6 (Version None)
Quarter: 2007Q1

REPORT INFORMATION
  Report Type: 
  Country: None (occurrence: None)
  Receive Date: 20070126
  Receipt Date: 20051123
  Transmission Date: 20070707
  Serious: No
  Sender: FDA-Public Use
  Company Number: 2006CT000819

PATIENT
  Age: 47 Year
  Sex: Female
  Weight: 74.8435 kg

DRUGS (13)
  1. VENTAVIS [Suspect]
     Indication: PULMONARY HYPERTENSION
     Dosage: 5 UG;6TO9X/DAY;INH
     Route: 055
     Dates: start: 20051121, end: 20051123
  2. ASPIRIN [Concomitant]
  3. TRACLEER [Concomitant]
  4. PROCARDIA [Concomitant]
  5. PREDNSONE [Concomitant]
  6. NEXIUM [Concomitant]
  7. ZOLOFT [Concomitant]
  8. WARFARIN SODIUM [Concomitant]
  9. FERROUS SULFATE [Concomitant]
  10. SPIRONOLACTONE [Concomitant]
  11. FOSAMAX [Concomitant]
  12. LISINOPRIL [Concomitant]
  13. VICODIN [Concomitant]

REACTIONS (1)
  - SENSATION OF FOREIGN BODY [None]
